FAERS Safety Report 8100264-7 (Version None)
Quarter: 2012Q1

REPORT INFORMATION
  Report Type: 
  Country: None (occurrence: None)
  Receive Date: 20120131
  Receipt Date: 20120119
  Transmission Date: 20120608
  Serious: Yes (Death)
  Sender: FDA-Public Use
  Company Number: US-JNJFOC-20120109458

PATIENT
  Sex: Male

DRUGS (3)
  1. HUMIRA [Suspect]
     Indication: CROHN'S DISEASE
     Dosage: START DATE APPROXIMATELY JUNE OR AUGUST
     Dates: start: 20080101, end: 20100201
  2. IMURAN [Suspect]
     Indication: CROHN'S DISEASE
     Dates: start: 20080101, end: 20100201
  3. REMICADE [Suspect]
     Indication: CROHN'S DISEASE
     Dosage: DISCONTINUED JUNE OR AUGUST 2008
     Route: 042
     Dates: end: 20080101

REACTIONS (1)
  - MYELOID LEUKAEMIA [None]
